FAERS Safety Report 17855790 (Version 2)
Quarter: 2020Q2

REPORT INFORMATION
  Report Type: Report from Study
  Country: US (occurrence: US)
  Receive Date: 20200603
  Receipt Date: 20200608
  Transmission Date: 20200714
  Serious: Yes (Hospitalization, Other)
  Sender: FDA-Public Use
  Company Number: US-ACTELION-A-US2017-160641

PATIENT
  Age: 30 Year
  Sex: Female
  Weight: 48.53 kg

DRUGS (16)
  1. ADEMPAS [Concomitant]
     Active Substance: RIOCIGUAT
  2. UPTRAVI [Suspect]
     Active Substance: SELEXIPAG
     Dosage: 800 MCG, BID
     Route: 048
     Dates: start: 20170812
  3. IMITREX [Suspect]
     Active Substance: SUMATRIPTAN SUCCINATE
     Indication: PRODUCT USED FOR UNKNOWN INDICATION
     Route: 065
  4. LETAIRIS [Concomitant]
     Active Substance: AMBRISENTAN
  5. LOPERAMIDE [Concomitant]
     Active Substance: LOPERAMIDE
  6. RANITIDINE. [Concomitant]
     Active Substance: RANITIDINE
  7. ALPRAZOLAM. [Concomitant]
     Active Substance: ALPRAZOLAM
     Dosage: UNK
     Dates: start: 20180517
  8. UPTRAVI [Suspect]
     Active Substance: SELEXIPAG
     Dosage: 400 MCG QAM, 600MCG QPM
     Route: 048
  9. ADCIRCA [Concomitant]
     Active Substance: TADALAFIL
  10. NAPROXEN. [Concomitant]
     Active Substance: NAPROXEN
  11. RISPERIDONE. [Concomitant]
     Active Substance: RISPERIDONE
     Dosage: UNK
     Dates: start: 20180529
  12. UPTRAVI [Suspect]
     Active Substance: SELEXIPAG
     Dosage: 1000 MCG, BID
     Route: 048
  13. SILDENAFIL. [Concomitant]
     Active Substance: SILDENAFIL
  14. UPTRAVI [Suspect]
     Active Substance: SELEXIPAG
     Indication: PULMONARY ARTERIAL HYPERTENSION
     Dosage: 400 MCG, BID
     Route: 048
     Dates: start: 20170812
  15. UPTRAVI [Suspect]
     Active Substance: SELEXIPAG
     Dosage: 200 MCG, BID
     Route: 048
  16. ONDANSETRON [Concomitant]
     Active Substance: ONDANSETRON
     Dosage: UNK
     Dates: start: 20170809

REACTIONS (35)
  - Kidney infection [Unknown]
  - Feeling abnormal [Unknown]
  - Condition aggravated [Unknown]
  - Constipation [Unknown]
  - Myalgia [Unknown]
  - Nausea [Recovering/Resolving]
  - Insomnia [Recovered/Resolved]
  - Pyrexia [Unknown]
  - Chest pain [Unknown]
  - Palpitations [Unknown]
  - Tachycardia [Recovered/Resolved]
  - Pollakiuria [Recovered/Resolved]
  - Influenza [Unknown]
  - Eye pain [Unknown]
  - Dizziness [Unknown]
  - Abdominal pain upper [Unknown]
  - Anxiety [Recovering/Resolving]
  - Flushing [Unknown]
  - Back pain [Unknown]
  - Systemic inflammatory response syndrome [Recovered/Resolved]
  - Asthenia [Unknown]
  - Dyspnoea [Recovered/Resolved]
  - Gastrooesophageal reflux disease [Unknown]
  - Decreased appetite [Unknown]
  - Urinary tract infection [Recovered/Resolved]
  - Diarrhoea [Unknown]
  - Depression [Recovering/Resolving]
  - Headache [Recovering/Resolving]
  - Flank pain [Recovered/Resolved]
  - Hypotension [Not Recovered/Not Resolved]
  - Pain in jaw [Unknown]
  - Arthralgia [Unknown]
  - Migraine [Unknown]
  - Chills [Unknown]
  - Feeling cold [Unknown]

NARRATIVE: CASE EVENT DATE: 2017
